FAERS Safety Report 6638292-0 (Version None)
Quarter: 2010Q1

REPORT INFORMATION
  Report Type: 
  Country: None (occurrence: None)
  Receive Date: 20100312
  Receipt Date: 20100225
  Transmission Date: 20100710
  Serious: Yes (Hospitalization)
  Sender: FDA-Public Use
  Company Number: 2010BI001460

PATIENT
  Age: 54 Year
  Sex: Male

DRUGS (5)
  1. Y-90 [Suspect]
     Indication: NON-HODGKIN'S LYMPHOMA
     Dates: start: 20080327, end: 20080327
  2. Y-90 [Suspect]
     Indication: STEM CELL TRANSPLANT
     Dates: start: 20080327, end: 20080327
  3. CYCLOSPORINE [Concomitant]
  4. RITUXIMAB [Concomitant]
  5. FLUDARABINE PHOSPHATE [Concomitant]

REACTIONS (6)
  - ACUTE GRAFT VERSUS HOST DISEASE IN SKIN [None]
  - BRONCHOPNEUMONIA [None]
  - CYTOMEGALOVIRUS INFECTION [None]
  - DISEASE RECURRENCE [None]
  - ENTERITIS [None]
  - HUMAN HERPESVIRUS 6 INFECTION [None]
